FAERS Safety Report 16295106 (Version 2)
Quarter: 2019Q2

REPORT INFORMATION
  Report Type: Spontaneous
  Country: DE (occurrence: DE)
  Receive Date: 20190509
  Receipt Date: 20190524
  Transmission Date: 20190711
  Serious: Yes (Other)
  Sender: FDA-Public Use
  Company Number: DE-INCYTE CORPORATION-2019IN004499

PATIENT

DRUGS (4)
  1. JAKAVI [Suspect]
     Active Substance: RUXOLITINIB
     Dosage: 15 MG, BID
     Route: 065
     Dates: start: 201904
  2. JAKAVI [Suspect]
     Active Substance: RUXOLITINIB
     Dosage: 10 MG, BID
     Route: 065
  3. JAKAVI [Suspect]
     Active Substance: RUXOLITINIB
     Indication: MYELOFIBROSIS
     Dosage: 10 MG, BID (2X10 MG)
     Route: 065
     Dates: start: 201801
  4. JAKAVI [Suspect]
     Active Substance: RUXOLITINIB
     Dosage: 5 MG, BID
     Route: 065

REACTIONS (7)
  - Erythropoiesis abnormal [Unknown]
  - Megakaryocytes abnormal [Unknown]
  - Erythroid maturation arrest [Unknown]
  - Red blood cell count decreased [Not Recovered/Not Resolved]
  - Weight increased [Unknown]
  - Bone marrow reticulin fibrosis [Unknown]
  - Haemoglobin decreased [Unknown]
